FAERS Safety Report 24776804 (Version 1)
Quarter: 2024Q4

REPORT INFORMATION
  Report Type: Spontaneous
  Country: FR (occurrence: FR)
  Receive Date: 20241226
  Receipt Date: 20241226
  Transmission Date: 20250115
  Serious: Yes (Other)
  Sender: ABBVIE
  Company Number: None

PATIENT
  Age: 40 Year
  Sex: Female

DRUGS (3)
  1. NORVIR [Suspect]
     Active Substance: RITONAVIR
     Indication: HIV infection
     Route: 048
     Dates: start: 20240919, end: 20241128
  2. PREZISTA [Suspect]
     Active Substance: DARUNAVIR ETHANOLATE
     Indication: HIV infection
     Route: 048
     Dates: start: 20240919, end: 20241128
  3. TRUVADA [Suspect]
     Active Substance: EMTRICITABINE\TENOFOVIR DISOPROXIL FUMARATE
     Indication: HIV infection
     Route: 048
     Dates: start: 20240919, end: 20241128

REACTIONS (1)
  - Osteonecrosis [Recovered/Resolved]

NARRATIVE: CASE EVENT DATE: 20241128
